FAERS Safety Report 4266978-4 (Version None)
Quarter: 2004Q1

REPORT INFORMATION
  Report Type: 
  Country: None (occurrence: None)
  Receive Date: 20040108
  Receipt Date: 20030327
  Transmission Date: 20041129
  Serious: No
  Sender: FDA-Public Use
  Company Number: US-BRISTOL-MYERS SQUIBB COMPANY-12224010

PATIENT
  Age: 60 Year
  Sex: Female
  Weight: 70 kg

DRUGS (3)
  1. NADOLOL [Suspect]
     Dosage: 40 MG IN A.M. AND 20 MG AT NIGHT.
     Route: 048
     Dates: start: 20030123
  2. IMODIUM [Concomitant]
  3. MULTIVITAMIN [Concomitant]

REACTIONS (4)
  - HYPOAESTHESIA [None]
  - PAIN IN EXTREMITY [None]
  - PARAESTHESIA [None]
  - TRIGGER FINGER [None]
